FAERS Safety Report 9016107 (Version 1)
Quarter: 2013Q1

REPORT INFORMATION
  Report Type: Spontaneous
  Country: US (occurrence: US)
  Receive Date: 20130116
  Receipt Date: 20130116
  Transmission Date: 20140127
  Serious: Yes (Other)
  Sender: FDA-Public Use
  Company Number: US-009507513-1004USA01520

PATIENT
  Sex: 0

DRUGS (11)
  1. SINGULAIR [Suspect]
     Indication: DYSPNOEA
     Dosage: 10 MG, QD
     Route: 048
     Dates: start: 20081219, end: 20090406
  2. SINGULAIR [Suspect]
     Indication: MULTIPLE ALLERGIES
  3. ZOLOFT [Concomitant]
  4. ZYRTEC [Concomitant]
  5. MK-2933 [Concomitant]
     Dates: start: 20081219
  6. PLAVIX [Concomitant]
     Dates: start: 20081219
  7. ZOCOR [Concomitant]
     Route: 048
     Dates: start: 20081219
  8. ZOCOR [Concomitant]
     Route: 048
  9. PRILOSEC [Concomitant]
     Route: 048
  10. ADVAIR [Concomitant]
     Dates: start: 20081219, end: 20090114
  11. SPIRIVA [Concomitant]
     Dates: start: 20081219, end: 20090114

REACTIONS (12)
  - Abnormal behaviour [Recovered/Resolved]
  - Affective disorder [Recovered/Resolved]
  - Aggression [Recovered/Resolved]
  - Amnesia [Unknown]
  - Anger [Recovered/Resolved]
  - Death of relative [Unknown]
  - Drug ineffective [Unknown]
  - Emotional disorder [Recovered/Resolved]
  - Eye disorder [Unknown]
  - Impatience [Recovered/Resolved]
  - Poor quality sleep [Recovered/Resolved]
  - Tremor [Unknown]
